FAERS Safety Report 15157369 (Version 2)
Quarter: 2018Q3

REPORT INFORMATION
  Report Type: Report from Study
  Country: US (occurrence: US)
  Receive Date: 20180718
  Receipt Date: 20180919
  Transmission Date: 20181010
  Serious: Yes (Other)
  Sender: FDA-Public Use
  Company Number: US-BRISTOL-MYERS SQUIBB COMPANY-BMS-2018-063985

PATIENT

DRUGS (1)
  1. ABATACEPT [Suspect]
     Active Substance: ABATACEPT
     Indication: RHEUMATOID ARTHRITIS
     Route: 042

REACTIONS (7)
  - Malaise [Unknown]
  - Fall [Unknown]
  - Accident [Unknown]
  - Arthropathy [Unknown]
  - Vertigo [Unknown]
  - Loss of consciousness [Unknown]
  - Dizziness [Unknown]
